FAERS Safety Report 8520864-X (Version None)
Quarter: 2012Q3

REPORT INFORMATION
  Report Type: 
  Country: None (occurrence: None)
  Receive Date: 20120719
  Receipt Date: 20120706
  Transmission Date: 20120928
  Serious: Yes (Death, Hospitalization)
  Sender: FDA-Public Use
  Company Number: FR-009507513-2012SP036861

PATIENT

DRUGS (8)
  1. PEGASYS [Suspect]
     Indication: HEPATITIS C
     Dosage: 180 A?G, QW
     Dates: start: 20120514
  2. INSULIN ASPART, BIPHASIC ISOPHANE [INJECTION] [Concomitant]
     Indication: DIABETES MELLITUS
     Dosage: 32 IU, TID
     Dates: start: 20120528
  3. POTASSIUM CHLORIDE [Concomitant]
     Indication: HEPATIC CIRRHOSIS
     Dosage: 1000
     Dates: start: 20080101
  4. COPEGUS [Suspect]
     Indication: HEPATITIS C
     Dosage: 600 MG, BID
     Dates: start: 20120514
  5. LASIX [Concomitant]
     Indication: HEPATIC CIRRHOSIS
     Dosage: 40 MG, QD
     Dates: start: 20080101
  6. BOCEPREVIR [Suspect]
     Indication: HEPATITIS C
     Dosage: UNK UNK, TID
     Dates: start: 20120618, end: 20120711
  7. QUININE SULFATE [Concomitant]
     Indication: MUSCLE SPASMS
     Dosage: UNK UNK, TID
     Dates: start: 20120601
  8. ALDACTONE [Concomitant]
     Indication: HEPATIC CIRRHOSIS
     Dosage: 75 MG, QD
     Dates: start: 20080101

REACTIONS (4)
  - HEPATIC PAIN [None]
  - CHOLELITHIASIS [None]
  - CONDITION AGGRAVATED [None]
  - PYREXIA [None]
